FAERS Safety Report 9097931 (Version 1)
Quarter: 2013Q1

REPORT INFORMATION
  Report Type: Spontaneous
  Country: US (occurrence: US)
  Receive Date: 20130212
  Receipt Date: 20130212
  Transmission Date: 20140127
  Serious: No
  Sender: FDA-Public Use
  Company Number: US-PFIZER INC-2013054406

PATIENT
  Sex: Female

DRUGS (1)
  1. ADVIL MIGRAINE [Suspect]
     Indication: HEADACHE
     Dosage: 400 MG, ONCE
     Dates: start: 20130206, end: 20130207

REACTIONS (2)
  - Swelling face [Not Recovered/Not Resolved]
  - Hearing impaired [Not Recovered/Not Resolved]
